FAERS Safety Report 5190831-5 (Version None)
Quarter: 2006Q4

REPORT INFORMATION
  Report Type: 
  Country: None (occurrence: None)
  Receive Date: 20061222
  Receipt Date: 20061218
  Transmission Date: 20070319
  Serious: Yes (Other)
  Sender: FDA-Public Use
  Company Number: PHEH2006US15319

PATIENT
  Age: 73 Year
  Sex: Male

DRUGS (1)
  1. LOTREL [Suspect]

REACTIONS (1)
  - AORTIC ANEURYSM [None]
